FAERS Safety Report 9052817 (Version 11)
Quarter: 2014Q2

REPORT INFORMATION
  Report Type: Spontaneous
  Country: CA (occurrence: CA)
  Receive Date: 20130207
  Receipt Date: 20140626
  Transmission Date: 20141212
  Serious: Yes (Hospitalization)
  Sender: FDA-Public Use
  Company Number: CA-CELGENEUS-028-21880-12122256

PATIENT
  Age: 55 Year
  Sex: Male
  Weight: 102.2 kg

DRUGS (55)
  1. REVLIMID [Suspect]
     Indication: PLASMA CELL MYELOMA
     Dosage: 25 MILLIGRAM
     Route: 048
     Dates: start: 20120723, end: 20121205
  2. ELOTUZUMAB [Suspect]
     Indication: PLASMA CELL MYELOMA
     Dosage: 992 MILLIGRAM
     Route: 041
     Dates: start: 20120723, end: 20121129
  3. DEXAMETHASONE [Suspect]
     Indication: PLASMA CELL MYELOMA
     Dosage: 28 MILLIGRAM
     Route: 048
     Dates: start: 20120723, end: 20121212
  4. DEXAMETHASONE [Suspect]
     Indication: ADVERSE EVENT
     Dosage: 8 MILLIGRAM
     Route: 041
     Dates: start: 20120723
  5. DEXAMETHASONE [Suspect]
     Dosage: 16 MILLIGRAM
     Route: 048
     Dates: start: 20131003, end: 20131016
  6. DEXAMETHASONE [Suspect]
     Route: 048
     Dates: start: 20120723, end: 20130930
  7. DEXAMETHASONE [Suspect]
     Dosage: 12 MILLIGRAM
     Route: 048
     Dates: start: 20131017
  8. CLINDAMYCIN [Concomitant]
     Indication: ADVERSE EVENT
     Dosage: 1200 MILLIGRAM
     Route: 048
     Dates: start: 20130603, end: 20130613
  9. METFORMIN [Concomitant]
     Indication: PRODUCT USED FOR UNKNOWN INDICATION
     Route: 065
     Dates: start: 2002
  10. METFORMIN [Concomitant]
     Route: 065
     Dates: start: 20120708, end: 20120807
  11. OXYCODONE [Concomitant]
     Indication: PRODUCT USED FOR UNKNOWN INDICATION
     Route: 065
     Dates: start: 20120708, end: 20120715
  12. OXYCODONE [Concomitant]
     Indication: ADVERSE EVENT
     Dosage: 60 MILLIGRAM
     Route: 065
     Dates: start: 20131004, end: 20131011
  13. OXYCODONE [Concomitant]
     Dosage: 120 MILLIGRAM
     Route: 065
     Dates: start: 20131004, end: 20131011
  14. OXYCODONE [Concomitant]
     Route: 065
     Dates: start: 20120613, end: 20120905
  15. PANTOPRAZOLE MAGNESIUM [Concomitant]
     Indication: PRODUCT USED FOR UNKNOWN INDICATION
     Route: 065
     Dates: start: 20120708, end: 20120807
  16. PANTOPRAZOLE MAGNESIUM [Concomitant]
     Route: 065
     Dates: start: 2008, end: 20120723
  17. OXYCODONE/ACETAMINOPHEN [Concomitant]
     Indication: PRODUCT USED FOR UNKNOWN INDICATION
     Route: 065
     Dates: start: 20120515, end: 20120905
  18. DOCUSATE SODIUM [Concomitant]
     Indication: PRODUCT USED FOR UNKNOWN INDICATION
     Route: 065
     Dates: start: 2012
  19. SYMBICORT [Concomitant]
     Indication: ADVERSE EVENT
     Route: 065
     Dates: start: 1992
  20. SYMBICORT [Concomitant]
     Indication: PRODUCT USED FOR UNKNOWN INDICATION
     Route: 065
     Dates: start: 20130129
  21. TAMSULOSIN [Concomitant]
     Indication: PRODUCT USED FOR UNKNOWN INDICATION
     Route: 065
     Dates: start: 2007
  22. ASPIRIN [Concomitant]
     Indication: PRODUCT USED FOR UNKNOWN INDICATION
     Route: 065
     Dates: start: 20120723, end: 20120820
  23. ALLOPURINOL [Concomitant]
     Indication: PRODUCT USED FOR UNKNOWN INDICATION
     Route: 065
     Dates: start: 20120723, end: 20120731
  24. PANTOPRAZOLE [Concomitant]
     Indication: PRODUCT USED FOR UNKNOWN INDICATION
     Route: 065
     Dates: start: 20120723
  25. PANTOPRAZOLE [Concomitant]
     Route: 065
     Dates: start: 20131017
  26. RIVAROXABAN [Concomitant]
     Indication: PRODUCT USED FOR UNKNOWN INDICATION
     Route: 065
     Dates: start: 20120907, end: 20121004
  27. METRONIDAZOLE [Concomitant]
     Indication: ADVERSE EVENT
     Route: 065
     Dates: start: 20120914, end: 20120924
  28. METRONIDAZOLE [Concomitant]
     Route: 065
     Dates: start: 20121011
  29. METRONIDAZOLE [Concomitant]
     Route: 065
     Dates: start: 20121213, end: 20130101
  30. CIPROFLOXACIN [Concomitant]
     Indication: ADVERSE EVENT
     Route: 065
     Dates: start: 20120914, end: 20120924
  31. CIPROFLOXACIN [Concomitant]
     Route: 065
     Dates: start: 20121011, end: 20121027
  32. CIPROFLOXACIN [Concomitant]
     Route: 065
     Dates: start: 20121213, end: 20130101
  33. CIPROFLOXACIN [Concomitant]
     Dosage: 1000 MILLIGRAM
     Route: 065
     Dates: start: 20130703, end: 20130713
  34. DALTEPARIN [Concomitant]
     Indication: ADVERSE EVENT
     Route: 065
     Dates: start: 20120815, end: 20120907
  35. DALTEPARIN [Concomitant]
     Route: 065
     Dates: start: 20131029
  36. ONDANSETRON [Concomitant]
     Indication: ADVERSE EVENT
     Route: 065
     Dates: start: 20120904, end: 20120904
  37. TRAMADOL [Concomitant]
     Indication: PRODUCT USED FOR UNKNOWN INDICATION
     Route: 065
     Dates: start: 20120708, end: 20120715
  38. ACETAMINOPHEN [Concomitant]
     Indication: PRODUCT USED FOR UNKNOWN INDICATION
     Route: 065
     Dates: start: 20120708, end: 20120715
  39. ACETAMINOPHEN [Concomitant]
     Route: 065
     Dates: start: 20130113
  40. WARFARIN [Concomitant]
     Indication: ADVERSE EVENT
     Route: 065
     Dates: start: 20121005, end: 20121009
  41. WARFARIN [Concomitant]
     Indication: PRODUCT USED FOR UNKNOWN INDICATION
     Route: 065
     Dates: start: 20121010, end: 20121011
  42. WARFARIN [Concomitant]
     Route: 065
     Dates: start: 20121011, end: 20121012
  43. WARFARIN [Concomitant]
     Route: 065
     Dates: start: 20121128, end: 20121210
  44. FLAGYL [Concomitant]
     Indication: ADVERSE EVENT
     Route: 065
     Dates: start: 20121011, end: 20121027
  45. FLAGYL [Concomitant]
     Dosage: 1500 MILLIGRAM
     Route: 048
     Dates: start: 20130628, end: 20130708
  46. FLAGYL [Concomitant]
     Dosage: 1500 MILLIGRAM
     Route: 048
     Dates: start: 20130726, end: 20130823
  47. FRAGMIN [Concomitant]
     Indication: ADVERSE EVENT
     Route: 065
     Dates: start: 20121211, end: 20131007
  48. FRAGMIN [Concomitant]
     Indication: PRODUCT USED FOR UNKNOWN INDICATION
     Route: 065
     Dates: start: 20131011, end: 20131021
  49. PAMIDRONATE [Concomitant]
     Indication: PRODUCT USED FOR UNKNOWN INDICATION
     Route: 041
     Dates: start: 20130110
  50. MOMETASONE [Concomitant]
     Indication: ADVERSE EVENT
     Dosage: 2 SPRAYS
     Route: 045
     Dates: start: 20130911, end: 20130914
  51. IMODIUM [Concomitant]
     Indication: ADVERSE EVENT
     Route: 065
     Dates: start: 20130824
  52. INSULIN [Concomitant]
     Indication: PRODUCT USED FOR UNKNOWN INDICATION
     Route: 058
     Dates: start: 20131004
  53. OXYCONTIN [Concomitant]
     Indication: ADVERSE EVENT
     Route: 065
     Dates: start: 20131012
  54. GAVISCON [Concomitant]
     Indication: PRODUCT USED FOR UNKNOWN INDICATION
     Route: 065
     Dates: start: 20131017
  55. HUMALOG [Concomitant]
     Indication: ADVERSE EVENT
     Route: 065
     Dates: start: 20131004

REACTIONS (1)
  - International normalised ratio increased [Recovered/Resolved with Sequelae]
